FAERS Safety Report 6766985-3 (Version None)
Quarter: 2010Q2

REPORT INFORMATION
  Report Type: 
  Country: None (occurrence: None)
  Receive Date: 20100611
  Receipt Date: 20100604
  Transmission Date: 20101027
  Serious: Yes (Death)
  Sender: FDA-Public Use
  Company Number: GB-ROCHE-707371

PATIENT
  Age: 57 Year
  Sex: Male

DRUGS (2)
  1. RIBAVIRIN [Suspect]
     Indication: HEPATITIS C
     Route: 048
     Dates: start: 19950801, end: 19960101
  2. INTERFERON ALFA-2B [Suspect]
     Indication: HEPATITIS C
     Dosage: DOSE: 3 MU
     Route: 058
     Dates: start: 19950801, end: 19960101

REACTIONS (1)
  - PARKINSONISM [None]
